FAERS Safety Report 6821368-2 (Version None)
Quarter: 2010Q3

REPORT INFORMATION
  Report Type: 
  Country: None (occurrence: None)
  Receive Date: 20100707
  Receipt Date: 20081205
  Transmission Date: 20110219
  Serious: No
  Sender: FDA-Public Use
  Company Number: US-PFIZER INC-2008150628

PATIENT

DRUGS (1)
  1. ZOLOFT [Suspect]
     Route: 063

REACTIONS (5)
  - CRYING [None]
  - DRUG EXPOSURE VIA BREAST MILK [None]
  - INSOMNIA [None]
  - IRRITABILITY [None]
  - PHOTOPHOBIA [None]
